FAERS Safety Report 5417141-2 (Version None)
Quarter: 2007Q3

REPORT INFORMATION
  Report Type: 
  Country: None (occurrence: None)
  Receive Date: 20070718
  Receipt Date: 20060630
  Transmission Date: 20080115
  Serious: Yes (Hospitalization)
  Sender: FDA-Public Use
  Company Number: 2006068744

PATIENT
  Age: 57 Year
  Sex: Male
  Weight: 98.8842 kg

DRUGS (1)
  1. CELEBREX [Suspect]
     Indication: ARTHRITIS
     Dosage: 400 MG (200 MG,2 IN 1 D)
     Dates: start: 19990127

REACTIONS (1)
  - ACUTE MYOCARDIAL INFARCTION [None]
